FAERS Safety Report 5180997-5 (Version None)
Quarter: 2006Q4

REPORT INFORMATION
  Report Type: 
  Country: None (occurrence: None)
  Receive Date: 20061214
  Receipt Date: 20061214
  Transmission Date: 20070319
  Serious: Yes (Hospitalization, Disabling)
  Sender: FDA-Public Use
  Company Number: None

PATIENT
  Age: 86 Year
  Sex: Male
  Weight: 67.1324 kg

DRUGS (2)
  1. MEVACOR [Suspect]
     Indication: BLOOD CHOLESTEROL INCREASED
  2. ZOCOR [Suspect]
     Dosage: SEVERAL YEARS TILL 2004 OR 2005

REACTIONS (6)
  - ASTHENIA [None]
  - BALANCE DISORDER [None]
  - DEMENTIA [None]
  - MYALGIA [None]
  - NEUROGENIC BLADDER [None]
  - NEUROPATHY [None]
